FAERS Safety Report 12141047 (Version 2)
Quarter: 2016Q2

REPORT INFORMATION
  Report Type: Spontaneous
  Country: US (occurrence: US)
  Receive Date: 20160303
  Receipt Date: 20160411
  Transmission Date: 20160815
  Serious: No
  Sender: FDA-Public Use
  Company Number: US-PFIZER INC-2016067289

PATIENT
  Age: 82 Year
  Sex: Female
  Weight: 45.36 kg

DRUGS (1)
  1. TIKOSYN [Suspect]
     Active Substance: DOFETILIDE
     Indication: ATRIAL FIBRILLATION
     Dosage: 0.125 MG CAPSULES, 1 CAPSULE TWICE A DAY
     Route: 048
     Dates: start: 201601

REACTIONS (2)
  - Skin exfoliation [Recovering/Resolving]
  - Soft tissue mass [Recovering/Resolving]

NARRATIVE: CASE EVENT DATE: 201601
